FAERS Safety Report 11027476 (Version 2)
Quarter: 2015Q2

REPORT INFORMATION
  Report Type: Spontaneous
  Country: US (occurrence: US)
  Receive Date: 20150414
  Receipt Date: 20150525
  Transmission Date: 20150821
  Serious: Yes (Hospitalization)
  Sender: FDA-Public Use
  Company Number: US-JNJFOC-20121006272

PATIENT
  Age: 20 Year
  Sex: Female
  Weight: 58.97 kg

DRUGS (2)
  1. ORTHO TRI CYCLEN [Suspect]
     Active Substance: ETHINYL ESTRADIOL\NORGESTIMATE
     Indication: CONTRACEPTION
     Route: 048
     Dates: start: 200808, end: 200809
  2. DECADRON [Suspect]
     Active Substance: DEXAMETHASONE
     Indication: CEREBROVASCULAR ACCIDENT
     Route: 065
     Dates: start: 200809, end: 2012

REACTIONS (1)
  - Cerebrovascular accident [Recovering/Resolving]

NARRATIVE: CASE EVENT DATE: 200809
